FAERS Safety Report 20536874 (Version 1)
Quarter: 2022Q1

REPORT INFORMATION
  Report Type: Spontaneous
  Country: CA (occurrence: CA)
  Receive Date: 20220302
  Receipt Date: 20220302
  Transmission Date: 20220423
  Serious: Yes (Other)
  Sender: FDA-Public Use
  Company Number: CA-JNJFOC-20210856508

PATIENT
  Age: 62 Year
  Sex: Female

DRUGS (5)
  1. INFLIXIMAB [Suspect]
     Active Substance: INFLIXIMAB
     Indication: Ankylosing spondylitis
     Route: 042
  2. CODEINE [Concomitant]
     Active Substance: CODEINE
  3. ENBREL [Concomitant]
     Active Substance: ETANERCEPT
  4. PREDNISONE [Concomitant]
     Active Substance: PREDNISONE
  5. SULFASALAZINE [Concomitant]
     Active Substance: SULFASALAZINE

REACTIONS (2)
  - Osteoarthritis [Unknown]
  - Arthralgia [Unknown]
